FAERS Safety Report 9476863 (Version 2)
Quarter: 2013Q3

REPORT INFORMATION
  Report Type: Report from Study
  Country: DE (occurrence: DE)
  Receive Date: 20130826
  Receipt Date: 20130906
  Transmission Date: 20140515
  Serious: Yes (Death)
  Sender: FDA-Public Use
  Company Number: DE-ABBOTT-13P-062-1138165-00

PATIENT
  Sex: Male

DRUGS (3)
  1. HUMIRA [Suspect]
     Indication: COLITIS ULCERATIVE
     Route: 058
     Dates: start: 20121218
  2. AZATHIOPRINE [Concomitant]
     Indication: COLITIS
     Route: 048
     Dates: start: 2003
  3. MESALAZINE [Concomitant]
     Route: 048
     Dates: start: 2003

REACTIONS (1)
  - Sudden cardiac death [Fatal]
